FAERS Safety Report 4278976-5 (Version None)
Quarter: 2004Q1

REPORT INFORMATION
  Report Type: 
  Country: None (occurrence: None)
  Receive Date: 20040126
  Receipt Date: 20030130
  Transmission Date: 20041129
  Serious: Yes (Death, Other)
  Sender: FDA-Public Use
  Company Number: WAES 0302USA00070

PATIENT
  Age: 69 Year
  Sex: Female
  Weight: 73 kg

DRUGS (1)
  1. VIOXX [Suspect]
     Indication: ARTHRALGIA
     Route: 048

REACTIONS (15)
  - ADVERSE EVENT [None]
  - ANGINA PECTORIS [None]
  - ARRHYTHMIA [None]
  - ARTHRALGIA [None]
  - ASTHMA [None]
  - BLOOD CHOLESTEROL INCREASED [None]
  - BRONCHITIS CHRONIC [None]
  - CARDIAC VALVE DISEASE [None]
  - DEATH [None]
  - GALLBLADDER DISORDER [None]
  - GLUCOSE TOLERANCE IMPAIRED [None]
  - HEADACHE [None]
  - HEART RATE IRREGULAR [None]
  - HYPERTENSION [None]
  - PULMONARY EMBOLISM [None]
